FAERS Safety Report 24325764 (Version 2)
Quarter: 2025Q1

REPORT INFORMATION
  Report Type: Spontaneous
  Country: US (occurrence: US)
  Receive Date: 20240917
  Receipt Date: 20250124
  Transmission Date: 20250409
  Serious: Yes (Other)
  Sender: NOVO NORDISK
  Company Number: US-NOVOPROD-1281019

PATIENT
  Age: 75 Year
  Sex: Female

DRUGS (2)
  1. LEVEMIR [Suspect]
     Active Substance: INSULIN DETEMIR
     Indication: Type 1 diabetes mellitus
     Dosage: 18 IU, QD AT NIGHT
     Route: 058
     Dates: start: 2023, end: 2024
  2. NOVOLOG [Suspect]
     Active Substance: INSULIN ASPART
     Indication: Type 1 diabetes mellitus
     Route: 058
     Dates: start: 2023

REACTIONS (8)
  - Left atrial appendage closure implant [Unknown]
  - Lung disorder [Unknown]
  - Illness [Recovered/Resolved]
  - Chest discomfort [Unknown]
  - Hypersensitivity [Recovered/Resolved]
  - Diabetes mellitus inadequate control [Unknown]
  - Product dispensing error [Unknown]
  - Expired product administered [Unknown]

NARRATIVE: CASE EVENT DATE: 20230101
